FAERS Safety Report 13278657 (Version 1)
Quarter: 2017Q1

REPORT INFORMATION
  Report Type: Report from Study
  Country: None (occurrence: BR)
  Receive Date: 20170228
  Receipt Date: 20170228
  Transmission Date: 20170428
  Serious: Yes (Other)
  Sender: FDA-Public Use
  Company Number: BR-ABBVIE-17P-020-1891110-00

PATIENT
  Age: 58 Year
  Sex: Female
  Weight: 57 kg

DRUGS (10)
  1. LOSARTAN POTASSIUM. [Concomitant]
     Active Substance: LOSARTAN POTASSIUM
     Indication: ARRHYTHMIA
     Dosage: 50 MG (IN THE MORNING, WITH SELOZOK)
  2. PURAN [Concomitant]
     Active Substance: LEVOTHYROXINE SODIUM
     Indication: THYROID DISORDER
     Dosage: 1 TABLET (FASTING)
  3. GABA [Concomitant]
     Active Substance: HOMEOPATHICS
     Indication: PRODUCT USED FOR UNKNOWN INDICATION
     Dosage: 3 TABLET (AT BREAKFAST/ LUNCH/ DINNER)
  4. DIHYDROERGOCRISTINE [Concomitant]
     Active Substance: DIHYDROERGOCRISTINE
     Indication: MEMORY IMPAIRMENT
  5. ASPIRINA PREVENT [Concomitant]
     Active Substance: ASPIRIN
     Indication: CARDIAC DISORDER
     Dosage: 100 MG (AT NOON, WITH LIPIDIL)
  6. SELOZOK [Concomitant]
     Active Substance: METOPROLOL SUCCINATE
     Indication: ARRHYTHMIA
     Dosage: 50 MG (IN THE MORNING, WITH LOSARTAN)
  7. PANTOPRAZOLE [Concomitant]
     Active Substance: PANTOPRAZOLE SODIUM
     Indication: GASTRIC DISORDER
     Dosage: 2 TABLET (MORNING FASTING/ BEFORE DINNER)
  8. LIPIDIL [Suspect]
     Active Substance: FENOFIBRATE
     Indication: BLOOD TRIGLYCERIDES ABNORMAL
     Dosage: 160 MG (AFTER LUNCH)
     Route: 048
  9. LORAZEPAM. [Concomitant]
     Active Substance: LORAZEPAM
     Indication: PRODUCT USED FOR UNKNOWN INDICATION
     Dosage: 4 MG (MORNING/ NIGHT)
  10. LIPIDIL [Suspect]
     Active Substance: FENOFIBRATE
     Route: 065

REACTIONS (3)
  - Arterial occlusive disease [Recovered/Resolved]
  - Depression [Recovered/Resolved]
  - Blood triglycerides increased [Not Recovered/Not Resolved]

NARRATIVE: CASE EVENT DATE: 201409
